FAERS Safety Report 4308627-2 (Version None)
Quarter: 2004Q1

REPORT INFORMATION
  Report Type: 
  Country: None (occurrence: None)
  Receive Date: 20040227
  Receipt Date: 20040218
  Transmission Date: 20041129
  Serious: Yes (Other)
  Sender: FDA-Public Use
  Company Number: K200301952

PATIENT
  Age: 67 Year
  Sex: Female

DRUGS (2)
  1. CYTOMEL [Suspect]
     Indication: HYPOTHYROIDISM
     Dosage: 25 MCG, QD, ORAL
     Route: 048
     Dates: start: 20010101, end: 20040101
  2. ARMOUR THYROIDS (THYROID) [Concomitant]

REACTIONS (3)
  - AGEUSIA [None]
  - ANOSMIA [None]
  - THYROID FUNCTION TEST ABNORMAL [None]
